FAERS Safety Report 8067416-6 (Version None)
Quarter: 2012Q1

REPORT INFORMATION
  Report Type: 
  Country: None (occurrence: None)
  Receive Date: 20120124
  Receipt Date: 20120119
  Transmission Date: 20120608
  Serious: Yes (Hospitalization, Other)
  Sender: FDA-Public Use
  Company Number: US-ABBOTT-11P-163-0873730-00

PATIENT
  Sex: Female
  Weight: 118.04 kg

DRUGS (17)
  1. HUMIRA [Suspect]
     Indication: RHEUMATOID ARTHRITIS
     Dates: start: 20110901, end: 20111001
  2. LOSARTAN POTASSIUM [Concomitant]
     Indication: HYPERTENSION
  3. PRILOSEC [Concomitant]
     Indication: GASTROOESOPHAGEAL REFLUX DISEASE
  4. NASONEX [Concomitant]
     Indication: PRODUCT USED FOR UNKNOWN INDICATION
  5. MUCINEX [Concomitant]
     Indication: ASTHMA
  6. METFORMIN HYDROCHLORIDE [Concomitant]
     Indication: DIABETES MELLITUS
  7. ZANTAC [Concomitant]
     Indication: GASTROOESOPHAGEAL REFLUX DISEASE
  8. CLARITIN [Concomitant]
     Indication: PRODUCT USED FOR UNKNOWN INDICATION
  9. FOLBIC [Concomitant]
     Indication: RHEUMATOID ARTHRITIS
     Dosage: DAILY
  10. METHOTREXATE [Concomitant]
     Indication: RHEUMATOID ARTHRITIS
  11. APIDRA [Concomitant]
     Indication: DIABETES MELLITUS
     Dosage: 10 UNITS OR GREATER WTH MEALS
     Route: 058
  12. LANTUS [Concomitant]
     Indication: DIABETES MELLITUS
     Dosage: 70 UNITS NIGHTLY
     Route: 058
  13. ALLEGRA [Concomitant]
     Indication: HYPERSENSITIVITY
  14. SYMBICORT [Concomitant]
     Indication: ASTHMA
     Dosage: 160/4.5 2 PUFFS DAILY
  15. HUMIRA [Suspect]
  16. ASPIRIN [Concomitant]
     Indication: CARDIAC DISORDER
  17. PRAVOCHAL [Concomitant]
     Indication: BLOOD CHOLESTEROL INCREASED

REACTIONS (12)
  - ELECTROCARDIOGRAM ABNORMAL [None]
  - CARDIAC DISORDER [None]
  - FEELING ABNORMAL [None]
  - CHEST PAIN [None]
  - SINUSITIS [None]
  - PAIN IN EXTREMITY [None]
  - BURNING SENSATION [None]
  - ANGINA PECTORIS [None]
  - CARDIAC STRESS TEST ABNORMAL [None]
  - INFLAMMATION [None]
  - SLEEP APNOEA SYNDROME [None]
  - HYPERTENSION [None]
